FAERS Safety Report 5168788-2 (Version None)
Quarter: 2006Q4

REPORT INFORMATION
  Report Type: 
  Country: None (occurrence: None)
  Receive Date: 20061211
  Receipt Date: 20061201
  Transmission Date: 20070319
  Serious: Yes (Hospitalization)
  Sender: FDA-Public Use
  Company Number: ES-AMGEN-UK201235

PATIENT
  Sex: Female
  Weight: 65 kg

DRUGS (7)
  1. NEULASTA [Suspect]
     Route: 058
     Dates: start: 20060420, end: 20061125
  2. ADRIAMYCIN PFS [Concomitant]
     Route: 042
  3. BLEOMYCIN [Concomitant]
     Route: 042
  4. VINBLASTINE [Concomitant]
     Route: 042
  5. DACARBAZINE [Concomitant]
     Route: 042
  6. ONDANSETRON HCL [Concomitant]
     Route: 042
  7. RANITIDINE [Concomitant]
     Route: 042

REACTIONS (3)
  - LEUKOCYTOCLASTIC VASCULITIS [None]
  - OEDEMA PERIPHERAL [None]
  - PYREXIA [None]
